FAERS Safety Report 9006879 (Version 1)
Quarter: 2013Q1

REPORT INFORMATION
  Report Type: Spontaneous
  Country: US (occurrence: US)
  Receive Date: 20130110
  Receipt Date: 20130110
  Transmission Date: 20140127
  Serious: Yes (Death)
  Sender: FDA-Public Use
  Company Number: US-ASTRAZENECA-2013SE01329

PATIENT
  Age: 18 Year
  Sex: Male

DRUGS (4)
  1. QUETIAPINE [Suspect]
     Route: 048
  2. ESCITALOPRAM [Suspect]
     Route: 048
  3. CHLORPROMAZINE [Suspect]
     Route: 048
  4. VALPROIC ACID [Suspect]
     Route: 048

REACTIONS (1)
  - Toxicity to various agents [Fatal]
